FAERS Safety Report 11429378 (Version 1)
Quarter: 2015Q3

REPORT INFORMATION
  Report Type: Spontaneous
  Country: US (occurrence: US)
  Receive Date: 20150828
  Receipt Date: 20150828
  Transmission Date: 20151125
  Serious: No
  Sender: FDA-Public Use
  Company Number: US-ROCHE-1214865

PATIENT
  Sex: Male

DRUGS (1)
  1. PEGASYS [Suspect]
     Active Substance: PEGINTERFERON ALFA-2A
     Indication: HEPATITIS C
     Route: 058

REACTIONS (5)
  - Agitation [Not Recovered/Not Resolved]
  - Vomiting [Unknown]
  - Mental impairment [Not Recovered/Not Resolved]
  - Gastric disorder [Unknown]
  - Discomfort [Not Recovered/Not Resolved]
